FAERS Safety Report 21622968 (Version 1)
Quarter: 2022Q4

REPORT INFORMATION
  Report Type: Spontaneous
  Country: US (occurrence: None)
  Receive Date: 20221119
  Receipt Date: 20221119
  Transmission Date: 20230113
  Serious: Yes (Disabling)
  Sender: FDA-Public Use
  Company Number: None

PATIENT
  Sex: Female
  Weight: 88.45 kg

DRUGS (2)
  1. PARAGARD T 380A [Suspect]
     Active Substance: COPPER
  2. UNSPECIFIED INGREDIENT [Suspect]
     Active Substance: UNSPECIFIED INGREDIENT

REACTIONS (7)
  - Arthralgia [None]
  - Pain in extremity [None]
  - Arthralgia [None]
  - Mobility decreased [None]
  - Dyspnoea [None]
  - Face oedema [None]
  - Fatigue [None]

NARRATIVE: CASE EVENT DATE: 20140627
